FAERS Safety Report 25718671 (Version 1)
Quarter: 2025Q3

REPORT INFORMATION
  Report Type: Spontaneous
  Country: US (occurrence: US)
  Receive Date: 20250823
  Receipt Date: 20250823
  Transmission Date: 20251021
  Serious: No
  Sender: SANOFI AVENTIS
  Company Number: US-SA-2025SA250381

PATIENT
  Age: 6 Year
  Sex: Female

DRUGS (2)
  1. DUPIXENT [Suspect]
     Active Substance: DUPILUMAB
     Indication: Eczema
     Dosage: 300 MG, Q4W
     Route: 058
     Dates: start: 202503, end: 202506
  2. DUPIXENT [Suspect]
     Active Substance: DUPILUMAB
     Dosage: 300 MG, Q4W
     Route: 058
     Dates: start: 202508

REACTIONS (10)
  - Rash [Recovering/Resolving]
  - Rebound effect [Recovering/Resolving]
  - Intentional dose omission [Recovering/Resolving]
  - Dry skin [Recovering/Resolving]
  - Rebound effect [Recovering/Resolving]
  - Pruritus [Recovering/Resolving]
  - Rebound effect [Recovering/Resolving]
  - Eczema [Unknown]
  - Eyelid rash [Unknown]
  - Eyelids pruritus [Unknown]

NARRATIVE: CASE EVENT DATE: 20250701
